FAERS Safety Report 24919165 (Version 1)
Quarter: 2025Q1

REPORT INFORMATION
  Report Type: Spontaneous
  Country: IN (occurrence: IN)
  Receive Date: 20250204
  Receipt Date: 20250204
  Transmission Date: 20250409
  Serious: Yes (Hospitalization, Other)
  Sender: JOHNSON AND JOHNSON
  Company Number: IN-COLLEGIUM PHARMACEUTICAL, INC.-20240900727

PATIENT
  Age: 20 Year
  Sex: Male

DRUGS (5)
  1. TAPENTADOL [Suspect]
     Active Substance: TAPENTADOL
     Indication: Drug detoxification
     Dosage: 1000 MILLIGRAM, 1/DAY
     Route: 048
  2. TAPENTADOL [Suspect]
     Active Substance: TAPENTADOL
  3. TAPENTADOL [Suspect]
     Active Substance: TAPENTADOL
     Dosage: 25 MILLIGRAM, 1/DAY
  4. TAPENTADOL [Suspect]
     Active Substance: TAPENTADOL
     Dosage: 100 MILLIGRAM, 3/DAY
  5. PREGABALIN [Concomitant]
     Active Substance: PREGABALIN
     Indication: Product used for unknown indication
     Dosage: 300 MILLIGRAM, 2/WEEK

REACTIONS (5)
  - Drug abuse [Recovered/Resolved]
  - Dystonia [Recovered/Resolved]
  - Drug withdrawal syndrome [Recovered/Resolved]
  - Drug use disorder [Recovered/Resolved]
  - Overdose [Unknown]
